FAERS Safety Report 13885314 (Version 2)
Quarter: 2017Q3

REPORT INFORMATION
  Report Type: Report from Study
  Country: CA (occurrence: CA)
  Receive Date: 20170821
  Receipt Date: 20170914
  Transmission Date: 20171127
  Serious: Yes (Hospitalization, Other)
  Sender: FDA-Public Use
  Company Number: CA-AMGEN-CANSL2017123103

PATIENT
  Age: 43 Year
  Sex: Female

DRUGS (2)
  1. ENBREL [Suspect]
     Active Substance: ETANERCEPT
     Dosage: UNK
     Route: 065
     Dates: start: 2016
  2. ENBREL [Suspect]
     Active Substance: ETANERCEPT
     Indication: PSORIASIS
     Dosage: 50 MG, UNK
     Route: 065
     Dates: start: 20151031, end: 2016

REACTIONS (3)
  - Pulmonary embolism [Recovered/Resolved]
  - General physical health deterioration [Unknown]
  - Alopecia [Recovered/Resolved]

NARRATIVE: CASE EVENT DATE: 201603
